FAERS Safety Report 19464549 (Version 2)
Quarter: 2021Q2

REPORT INFORMATION
  Report Type: Spontaneous
  Country: JP (occurrence: JP)
  Receive Date: 20210626
  Receipt Date: 20210626
  Transmission Date: 20210717
  Serious: Yes (Other)
  Sender: FDA-Public Use
  Company Number: JP-TAKEDA-2021TUS038838

PATIENT

DRUGS (1)
  1. HUMAN NORMAL IMMUNOGLOBULIN [Suspect]
     Active Substance: HUMAN IMMUNOGLOBULIN G
     Indication: RENAL TRANSPLANT
     Dosage: UNK
     Route: 042

REACTIONS (5)
  - Leukopenia [Unknown]
  - Off label use [Unknown]
  - Thrombocytopenia [Unknown]
  - Drug effective for unapproved indication [Unknown]
  - Neutropenia [Unknown]
